FAERS Safety Report 4739875-5 (Version None)
Quarter: 2005Q3

REPORT INFORMATION
  Report Type: 
  Country: None (occurrence: None)
  Receive Date: 20050805
  Receipt Date: 20050722
  Transmission Date: 20060218
  Serious: Yes (Other)
  Sender: FDA-Public Use
  Company Number: 05-000533

PATIENT
  Age: 33 Year
  Sex: Female
  Weight: 65.3 kg

DRUGS (1)
  1. NATACHEW(NATAFORT) CHEWABLE [Suspect]
     Indication: VITAMIN SUPPLEMENTATION
     Dosage: QD, ORAL
     Route: 048
     Dates: start: 20020101

REACTIONS (3)
  - APPENDICECTOMY [None]
  - DRUG EXPOSURE DURING PREGNANCY [None]
  - GESTATIONAL DIABETES [None]
